FAERS Safety Report 9989236 (Version 2)
Quarter: 2014Q2

REPORT INFORMATION
  Report Type: Spontaneous
  Country: FR (occurrence: FR)
  Receive Date: 20140310
  Receipt Date: 20140423
  Transmission Date: 20141212
  Serious: Yes (Other)
  Sender: FDA-Public Use
  Company Number: FR-JNJFOC-20140302671

PATIENT
  Age: 84 Year
  Sex: Male

DRUGS (8)
  1. XARELTO [Suspect]
     Indication: CEREBROVASCULAR ACCIDENT PROPHYLAXIS
     Route: 048
     Dates: start: 20121109
  2. XARELTO [Suspect]
     Indication: ATRIAL FIBRILLATION
     Route: 048
     Dates: start: 20121109
  3. SELOKEN (METOPROLOL TARTRATE) [Concomitant]
     Route: 065
  4. ZOCOR [Concomitant]
     Route: 065
  5. DIGOXINE [Concomitant]
     Route: 065
  6. ZYLORIC [Concomitant]
     Route: 065
  7. AUGMENTIN [Concomitant]
     Indication: LOCALISED INFECTION
     Route: 065
  8. NISISCO [Concomitant]
     Route: 065

REACTIONS (1)
  - Epistaxis [Unknown]
